FAERS Safety Report 22229561 (Version 11)
Quarter: 2023Q4

REPORT INFORMATION
  Report Type: Spontaneous
  Country: US (occurrence: US)
  Receive Date: 20230419
  Receipt Date: 20231229
  Transmission Date: 20240109
  Serious: No
  Sender: FDA-Public Use
  Company Number: US-VERTEX PHARMACEUTICALS-2023-005451

PATIENT
  Age: 22 Year
  Sex: Female

DRUGS (2)
  1. TRIKAFTA [Suspect]
     Active Substance: ELEXACAFTOR\IVACAFTOR\TEZACAFTOR
     Indication: Cystic fibrosis
     Dosage: UNKNOWN FREQUENCY
     Route: 048
     Dates: start: 201912
  2. CREON [Concomitant]
     Active Substance: PANCRELIPASE AMYLASE\PANCRELIPASE LIPASE\PANCRELIPASE PROTEASE

REACTIONS (20)
  - Agoraphobia [Unknown]
  - Asthenia [Unknown]
  - Feeling abnormal [Unknown]
  - Diarrhoea [Not Recovered/Not Resolved]
  - Hepatic enzyme increased [Unknown]
  - Fear [Unknown]
  - Fatigue [Unknown]
  - Emotional disorder [Unknown]
  - Anxiety [Not Recovered/Not Resolved]
  - Depression [Recovering/Resolving]
  - Hordeolum [Unknown]
  - Staphylococcal infection [Unknown]
  - Eye pruritus [Unknown]
  - Irritable bowel syndrome [Not Recovered/Not Resolved]
  - Visual impairment [Unknown]
  - Dyspepsia [Not Recovered/Not Resolved]
  - Sleep disorder [Not Recovered/Not Resolved]
  - Decreased appetite [Unknown]
  - Panic attack [Recovered/Resolved]
  - Acne [Unknown]

NARRATIVE: CASE EVENT DATE: 20190101
